FAERS Safety Report 17664172 (Version 1)
Quarter: 2020Q2

REPORT INFORMATION
  Report Type: Spontaneous
  Country: US (occurrence: US)
  Receive Date: 20200414
  Receipt Date: 20200414
  Transmission Date: 20200713
  Serious: Yes (Hospitalization)
  Sender: FDA-Public Use
  Company Number: US-BEH-2020115665

PATIENT
  Sex: Male

DRUGS (1)
  1. HIZENTRA [Suspect]
     Active Substance: HUMAN IMMUNOGLOBULIN G
     Indication: CEREBRAL PALSY
     Dosage: 30 GRAM, QMT
     Route: 058
     Dates: start: 20191030

REACTIONS (4)
  - No adverse event [Unknown]
  - Urinary tract infection [Unknown]
  - Viral infection [Unknown]
  - Product use in unapproved indication [Unknown]
